FAERS Safety Report 17902433 (Version 3)
Quarter: 2020Q3

REPORT INFORMATION
  Report Type: Spontaneous
  Country: GR (occurrence: GR)
  Receive Date: 20200617
  Receipt Date: 20200807
  Transmission Date: 20201103
  Serious: Yes (Hospitalization)
  Sender: FDA-Public Use
  Company Number: GR-ROCHE-2623715

PATIENT
  Age: 34 Year
  Sex: Female

DRUGS (2)
  1. XOLAIR [Suspect]
     Active Substance: OMALIZUMAB
     Indication: CHRONIC SPONTANEOUS URTICARIA
     Route: 065
     Dates: start: 201904
  2. PULMOTON [Concomitant]
     Indication: CHRONIC SPONTANEOUS URTICARIA
     Dosage: 250 MG
     Route: 065

REACTIONS (2)
  - Multiple sclerosis [Unknown]
  - Musculoskeletal discomfort [Unknown]
